APPROVED DRUG PRODUCT: EPIVIR
Active Ingredient: LAMIVUDINE
Strength: 300MG
Dosage Form/Route: TABLET;ORAL
Application: N020564 | Product #003 | TE Code: AB
Applicant: VIIV HEALTHCARE CO
Approved: Jun 24, 2002 | RLD: Yes | RS: Yes | Type: RX